FAERS Safety Report 7435956-6 (Version None)
Quarter: 2011Q2

REPORT INFORMATION
  Report Type: 
  Country: None (occurrence: None)
  Receive Date: 20110425
  Receipt Date: 20110413
  Transmission Date: 20111010
  Serious: Yes (Hospitalization)
  Sender: FDA-Public Use
  Company Number: IN-BAYER-2011-031396

PATIENT
  Age: 55 Year
  Sex: Female
  Weight: 60 kg

DRUGS (5)
  1. CAFFEIN [Suspect]
     Indication: NASOPHARYNGITIS
     Dosage: DAILY DOSE 2 DF
     Route: 048
  2. ACETAMINOPHEN [Suspect]
     Indication: COUGH
  3. ACETAMINOPHEN [Suspect]
     Indication: NASOPHARYNGITIS
     Dosage: DAILY DOSE 2 DF
     Route: 048
  4. PHENYLEPHRINE HYDROCHLORIDE [Suspect]
     Dosage: DAILY DOSE 2 DF
     Route: 048
  5. CAFFEIN [Suspect]
     Indication: COUGH

REACTIONS (1)
  - DRUG ERUPTION [None]
